FAERS Safety Report 11263511 (Version 2)
Quarter: 2015Q4

REPORT INFORMATION
  Report Type: Report from Study
  Country: KR (occurrence: KR)
  Receive Date: 20150713
  Receipt Date: 20151215
  Transmission Date: 20160304
  Serious: Yes (Hospitalization)
  Sender: FDA-Public Use
  Company Number: KR-AMGEN-KORCT2015069117

PATIENT
  Age: 82 Year
  Sex: Female
  Weight: 53 kg

DRUGS (15)
  1. NESP [Concomitant]
     Active Substance: DARBEPOETIN ALFA
     Dosage: 120 MUG, UNK
     Route: 058
     Dates: start: 20150506, end: 20150506
  2. GALVUS [Concomitant]
     Active Substance: VILDAGLIPTIN
     Dosage: 50 MG, UNK
     Route: 048
     Dates: start: 20150506
  3. KASHUT [Concomitant]
     Dosage: 5G/20ML
     Route: 048
     Dates: start: 20150506
  4. LANTUS [Concomitant]
     Active Substance: INSULIN GLARGINE
     Dosage: 14 IU, UNK
     Route: 058
     Dates: start: 20150204, end: 20150506
  5. TASNA [Concomitant]
     Dosage: 2000 MG, UNK
     Route: 048
     Dates: start: 20140806
  6. DESOWEN [Concomitant]
     Active Substance: DESONIDE
     Dosage: 2 APPLICATION, UNK
     Route: 061
     Dates: start: 20141105
  7. CINACALCET HCL [Suspect]
     Active Substance: CINACALCET HYDROCHLORIDE
     Indication: HYPERPARATHYROIDISM SECONDARY
     Dosage: 25 MG, QD
     Route: 048
     Dates: start: 20150204
  8. BACTROBAN [Concomitant]
     Active Substance: MUPIROCIN\MUPIROCIN CALCIUM
     Dosage: 1 APPLICATION, UNK
     Route: 061
     Dates: start: 20140108
  9. CELEBREX [Concomitant]
     Active Substance: CELECOXIB
     Dosage: 200 MG, UNK
     Route: 048
     Dates: start: 20141105
  10. ASPIRIN ENTERIC COATED K.P. [Concomitant]
     Active Substance: ASPIRIN
     Dosage: 100 MG, UNK
     Route: 048
     Dates: start: 20131129
  11. ATACAND [Concomitant]
     Active Substance: CANDESARTAN CILEXETIL
     Dosage: 32 MG, UNK
     Route: 048
     Dates: start: 20150204
  12. DIAMICRON [Concomitant]
     Active Substance: GLICLAZIDE
     Dosage: 120 MG, UNK
     Route: 048
     Dates: start: 20150204, end: 20150505
  13. VYTORIN [Concomitant]
     Active Substance: EZETIMIBE\SIMVASTATIN
     Dosage: 1 DF, UNK
     Route: 048
     Dates: start: 20131129
  14. RENALMIN [Concomitant]
     Dosage: 1 DF, UNK
     Route: 048
     Dates: start: 20131127
  15. FEROBA U [Concomitant]
     Dosage: 2 DF, UNK
     Route: 048
     Dates: start: 20131127

REACTIONS (1)
  - Upper gastrointestinal haemorrhage [Recovered/Resolved]

NARRATIVE: CASE EVENT DATE: 20150516
